FAERS Safety Report 19255131 (Version 12)
Quarter: 2021Q3

REPORT INFORMATION
  Report Type: Report from Study
  Country: JP (occurrence: JP)
  Receive Date: 20210513
  Receipt Date: 20210721
  Transmission Date: 20211014
  Serious: Yes (Hospitalization)
  Sender: FDA-Public Use
  Company Number: JP-EISAI MEDICAL RESEARCH-EC-2021-092647

PATIENT
  Age: 81 Year
  Sex: Male
  Weight: 49.2 kg

DRUGS (28)
  1. PHOSRIBBON [Suspect]
     Active Substance: SODIUM PHOSPHATE, DIBASIC\SODIUM PHOSPHATE, MONOBASIC
     Indication: PRODUCT USED FOR UNKNOWN INDICATION
     Route: 048
     Dates: start: 20210512, end: 20210516
  2. POSTERISAN FORTE [Concomitant]
     Active Substance: LIDOCAINE
     Route: 065
     Dates: start: 20201215
  3. LENVATINIB [Suspect]
     Active Substance: LENVATINIB
     Route: 048
     Dates: start: 20210427, end: 20210505
  4. SENNOSIDES. [Concomitant]
     Active Substance: SENNOSIDES
     Route: 065
     Dates: start: 20201221
  5. THYRADIN S [Concomitant]
     Active Substance: LEVOTHYROXINE SODIUM
     Route: 065
     Dates: start: 20210323
  6. STIBRON [Concomitant]
     Dosage: CREAM
     Dates: start: 20201031
  7. KOLANTYL [Concomitant]
     Active Substance: DICYCLOMINE HYDROCHLORIDE
     Dates: start: 20210409
  8. PEMBROLIZUMAB. [Suspect]
     Active Substance: PEMBROLIZUMAB
     Indication: HEPATOCELLULAR CARCINOMA
     Route: 041
     Dates: start: 20201124, end: 20210302
  9. KERATINAMIN [Concomitant]
     Active Substance: UREA
     Route: 065
     Dates: start: 20210209
  10. PEMBROLIZUMAB. [Suspect]
     Active Substance: PEMBROLIZUMAB
     Route: 041
     Dates: start: 20210413, end: 20210413
  11. TAKECAB [Concomitant]
     Active Substance: VONOPRAZAN FUMARATE
     Route: 065
     Dates: start: 201901
  12. CLOBETASOL PROPIONATE. [Concomitant]
     Active Substance: CLOBETASOL PROPIONATE
     Route: 065
     Dates: start: 201901
  13. EURAX [Concomitant]
     Active Substance: CROTAMITON
     Route: 065
     Dates: start: 20201216
  14. LOPERAMIDE HYDROCHLORIDE. [Concomitant]
     Active Substance: LOPERAMIDE HYDROCHLORIDE
     Route: 065
     Dates: start: 20210224
  15. PETROLATUM WHITE [Concomitant]
     Route: 065
     Dates: start: 20210312
  16. LOXONIN [Concomitant]
     Active Substance: LOXOPROFEN SODIUM
     Route: 065
     Dates: start: 20210313
  17. VENAPASTA [Concomitant]
     Dosage: RINSE
     Route: 055
     Dates: start: 201901
  18. TRAZENTA [Concomitant]
     Active Substance: LINAGLIPTIN
     Route: 065
     Dates: start: 201901
  19. RESTAMIN [Concomitant]
     Active Substance: DIPHENHYDRAMINE
     Route: 065
     Dates: start: 20201208
  20. RINDERON VG [Concomitant]
     Active Substance: BETAMETHASONE VALERATE\GENTAMICIN SULFATE
     Route: 065
     Dates: start: 20201228
  21. MYSER [Concomitant]
     Route: 065
     Dates: start: 20210224
  22. LENVATINIB [Suspect]
     Active Substance: LENVATINIB
     Indication: HEPATOCELLULAR CARCINOMA
     Route: 048
     Dates: start: 20201124, end: 20210405
  23. LENVATINIB [Suspect]
     Active Substance: LENVATINIB
     Route: 048
     Dates: start: 20210701
  24. AROTINOLOL HYDROCHLORIDE [Concomitant]
     Active Substance: AROTINOLOL HYDROCHLORIDE
     Route: 065
     Dates: start: 201901
  25. KARY UNI [Concomitant]
     Active Substance: PIRENOXINE
     Route: 065
     Dates: start: 202010
  26. PIRENOXINE [Concomitant]
     Active Substance: PIRENOXINE
     Dates: start: 20210416
  27. ALLELOCK [Concomitant]
     Active Substance: OLOPATADINE HYDROCHLORIDE
     Route: 065
     Dates: start: 20201208
  28. BUSCOPAN [Concomitant]
     Active Substance: BUTYLSCOPOLAMINE BROMIDE
     Dates: start: 20210119

REACTIONS (2)
  - Interstitial lung disease [Recovering/Resolving]
  - Alanine aminotransferase increased [Recovered/Resolved]

NARRATIVE: CASE EVENT DATE: 20210430
